FAERS Safety Report 20605621 (Version 2)
Quarter: 2022Q2

REPORT INFORMATION
  Report Type: Spontaneous
  Country: US (occurrence: US)
  Receive Date: 20220317
  Receipt Date: 20220512
  Transmission Date: 20220721
  Serious: Yes (Other)
  Sender: FDA-Public Use
  Company Number: US-SA-SAC20220314000689

PATIENT
  Age: 55 Year
  Sex: Male

DRUGS (3)
  1. ZANTAC [Suspect]
     Active Substance: RANITIDINE HYDROCHLORIDE
     Indication: Dyspepsia
     Dosage: 75 MG, FREQUENCY : OTHER
     Route: 065
     Dates: start: 199812
  2. ZANTAC [Suspect]
     Active Substance: RANITIDINE HYDROCHLORIDE
     Indication: Abdominal discomfort
     Dosage: 150 MG,FREQUENCY : OTHER
     Route: 065
  3. ZANTAC [Suspect]
     Active Substance: RANITIDINE HYDROCHLORIDE
     Dosage: 300 MG,FREQUENCY : OTHER
     Route: 065
     Dates: end: 201911

REACTIONS (3)
  - Bladder cancer [Unknown]
  - Prostate cancer [Unknown]
  - Prostate cancer recurrent [Unknown]

NARRATIVE: CASE EVENT DATE: 20080901
